FAERS Safety Report 8620655-5 (Version None)
Quarter: 2012Q3

REPORT INFORMATION
  Report Type: 
  Country: None (occurrence: None)
  Receive Date: 20120824
  Receipt Date: 20120817
  Transmission Date: 20120928
  Serious: Yes (Hospitalization)
  Sender: FDA-Public Use
  Company Number: US-ACTELION-A-NJ2007-14264

PATIENT
  Age: 47 Year
  Sex: Female

DRUGS (15)
  1. TRACLEER [Suspect]
     Indication: PULMONARY ARTERIAL HYPERTENSION
     Dosage: 62.5 MG, BID
     Route: 048
     Dates: start: 20070104, end: 20070203
  2. NEURONTIN [Concomitant]
  3. ASPIRIN [Concomitant]
  4. OXYCONTIN [Concomitant]
  5. VALIUM [Concomitant]
  6. PREVACID [Concomitant]
  7. LEXAPRO [Concomitant]
  8. TRACLEER [Suspect]
     Dosage: 125 MG, BID
     Route: 048
     Dates: start: 20070204, end: 20070213
  9. EPIVIR [Concomitant]
  10. TRACLEER [Suspect]
     Dosage: 62.5 MG, BID
     Route: 048
     Dates: start: 20070217
  11. ZIAGEN [Concomitant]
  12. LASIX [Concomitant]
  13. ESZOPICLONE [Concomitant]
  14. ALBUTEROL [Concomitant]
  15. VIREAD [Concomitant]

REACTIONS (13)
  - HYPOTENSION [None]
  - HEART RATE INCREASED [None]
  - MYOCARDIAL INFARCTION [None]
  - CHRONIC OBSTRUCTIVE PULMONARY DISEASE [None]
  - DRY SKIN [None]
  - VISUAL IMPAIRMENT [None]
  - PNEUMONIA [None]
  - MIGRAINE [None]
  - DIZZINESS [None]
  - OXYGEN SATURATION DECREASED [None]
  - WEIGHT DECREASED [None]
  - OEDEMA PERIPHERAL [None]
  - ADVERSE DRUG REACTION [None]
